FAERS Safety Report 7423846-4 (Version None)
Quarter: 2011Q2

REPORT INFORMATION
  Report Type: 
  Country: None (occurrence: None)
  Receive Date: 20110419
  Receipt Date: 20110414
  Transmission Date: 20111010
  Serious: Yes (Death, Hospitalization)
  Sender: FDA-Public Use
  Company Number: PHHY2011US31503

PATIENT
  Sex: Female
  Weight: 78.413 kg

DRUGS (2)
  1. CALCIUM CHANNEL BLOCKERS [Concomitant]
     Indication: ARRHYTHMIA
  2. ZOMETA [Suspect]
     Dosage: 4 MG, UNK
     Dates: end: 20100101

REACTIONS (3)
  - ASTHENIA [None]
  - HERPES ZOSTER DISSEMINATED [None]
  - DEATH [None]
